FAERS Safety Report 10213613 (Version 2)
Quarter: 2014Q2

REPORT INFORMATION
  Report Type: Spontaneous
  Country: US (occurrence: US)
  Receive Date: 20140603
  Receipt Date: 20140603
  Transmission Date: 20141212
  Serious: No
  Sender: FDA-Public Use
  Company Number: US-UPSHER-SMITH LABORATORIES, INC.-M1103980

PATIENT
  Age: 77 Year
  Sex: Male

DRUGS (4)
  1. PACERONE TABLETS 200 MG [Suspect]
     Indication: ATRIAL FIBRILLATION
     Route: 048
     Dates: start: 20110504, end: 201109
  2. PACERONE TABLETS 200 MG [Suspect]
     Dosage: 150 MG, QD
     Route: 048
     Dates: start: 201109, end: 2012
  3. PACERONE TABLETS 200 MG [Suspect]
     Dosage: 100 MG, QD
     Route: 048
     Dates: start: 2012
  4. LASIX [Concomitant]

REACTIONS (8)
  - Photosensitivity reaction [Recovering/Resolving]
  - Dry throat [Recovering/Resolving]
  - Productive cough [Recovering/Resolving]
  - Foreign body sensation in eyes [Recovering/Resolving]
  - Ocular hyperaemia [Recovering/Resolving]
  - Dysgeusia [Recovered/Resolved]
  - Balance disorder [Recovered/Resolved]
  - Rales [Not Recovered/Not Resolved]
